FAERS Safety Report 12426147 (Version 1)
Quarter: 2016Q2

REPORT INFORMATION
  Report Type: Spontaneous
  Country: US (occurrence: US)
  Receive Date: 20160601
  Receipt Date: 20160601
  Transmission Date: 20160815
  Serious: Yes (Other)
  Sender: FDA-Public Use
  Company Number: US-MDT-ADR-2015-02360

PATIENT
  Age: 65 Year
  Sex: Male

DRUGS (7)
  1. MODAFINIL. [Suspect]
     Active Substance: MODAFINIL
     Route: 065
  2. VENLAFAXINE [Suspect]
     Active Substance: VENLAFAXINE HYDROCHLORIDE
     Route: 065
  3. DONEPEZIL. [Suspect]
     Active Substance: DONEPEZIL
     Route: 065
  4. LIORESAL [Suspect]
     Active Substance: BACLOFEN
     Route: 037
     Dates: start: 20151209, end: 20150208
  5. METHENAMINE MANDELATE. [Suspect]
     Active Substance: METHENAMINE MANDELATE
     Route: 065
  6. LIORESAL [Suspect]
     Active Substance: BACLOFEN
     Route: 037
     Dates: start: 2012
  7. BUPROPION. [Suspect]
     Active Substance: BUPROPION
     Route: 065

REACTIONS (5)
  - Decubitus ulcer [Unknown]
  - No therapeutic response [Unknown]
  - Incorrect route of drug administration [Unknown]
  - Implant site extravasation [Unknown]
  - Muscle tightness [Unknown]

NARRATIVE: CASE EVENT DATE: 20121210
